FAERS Safety Report 6668731-0 (Version None)
Quarter: 2010Q3

REPORT INFORMATION
  Report Type: 
  Country: None (occurrence: None)
  Receive Date: 20100406
  Receipt Date: 20100329
  Transmission Date: 20110219
  Serious: Yes (Hospitalization)
  Sender: FDA-Public Use
  Company Number: US-JNJFOC-20100308810

PATIENT
  Sex: Female
  Weight: 36.2 kg

DRUGS (8)
  1. INFLIXIMAB [Suspect]
     Indication: INFLAMMATORY BOWEL DISEASE
     Route: 042
  2. 5-ASA [Suspect]
     Indication: INFLAMMATORY BOWEL DISEASE
     Route: 048
  3. ONDANSETRON [Concomitant]
  4. ANTIBIOTICS [Concomitant]
     Indication: INFLAMMATORY BOWEL DISEASE
  5. PROBIOTICS [Concomitant]
  6. ACETAMINOPHEN [Concomitant]
  7. MULTI-VITAMINS [Concomitant]
  8. OMEGA 3 FATTY ACID [Concomitant]

REACTIONS (1)
  - CROHN'S DISEASE [None]
